FAERS Safety Report 6158959-0 (Version None)
Quarter: 2009Q2

REPORT INFORMATION
  Report Type: 
  Country: None (occurrence: None)
  Receive Date: 20090417
  Receipt Date: 20090406
  Transmission Date: 20091009
  Serious: Yes (Hospitalization)
  Sender: FDA-Public Use
  Company Number: NL-PFIZER INC-2009194919

PATIENT

DRUGS (5)
  1. LYRICA [Suspect]
     Indication: NEURALGIA
     Dosage: 75 MG, 2X/DAY
     Route: 048
     Dates: start: 20081125, end: 20090309
  2. TRAMADOL HYDROCHLORIDE [Suspect]
     Route: 048
     Dates: start: 20081119
  3. URISPAS [Concomitant]
     Dosage: 200 MG, 3X/DAY
     Route: 048
     Dates: start: 20090102
  4. SIMVASTATIN [Concomitant]
     Dosage: 40 MG, 1X/DAY
     Route: 048
     Dates: start: 20090116
  5. DICLOFENAC SODIUM [Concomitant]
     Dosage: 50 MG, 3X/DAY
     Route: 048
     Dates: start: 20070406

REACTIONS (1)
  - TRANSIENT ISCHAEMIC ATTACK [None]
